FAERS Safety Report 15186838 (Version 1)
Quarter: 2018Q3

REPORT INFORMATION
  Report Type: Report from Study
  Country: US (occurrence: US)
  Receive Date: 20180723
  Receipt Date: 20180723
  Transmission Date: 20181010
  Serious: No
  Sender: FDA-Public Use
  Company Number: US-EXELIXIS-CABO-18011991

PATIENT
  Sex: Male

DRUGS (12)
  1. CALCIUM CARBONATE. [Concomitant]
     Active Substance: CALCIUM CARBONATE
  2. CARVEDILOL. [Concomitant]
     Active Substance: CARVEDILOL
  3. HYDROCODONE [Concomitant]
     Active Substance: HYDROCODONE
  4. LEVOTHYROXIN [Concomitant]
     Active Substance: LEVOTHYROXINE
  5. HYDRALAZINE [Concomitant]
     Active Substance: HYDRALAZINE HYDROCHLORIDE
  6. ISOSORBIDE. [Concomitant]
     Active Substance: ISOSORBIDE
  7. MORPHINE SULFATE. [Concomitant]
     Active Substance: MORPHINE SULFATE
  8. TORSEMIDE. [Concomitant]
     Active Substance: TORSEMIDE
  9. CABOMETYX [Suspect]
     Active Substance: CABOZANTINIB S-MALATE
     Indication: PRODUCT USED FOR UNKNOWN INDICATION
     Dosage: 40 MG, QD
     Route: 048
  10. DEXAMETHASON [Concomitant]
     Active Substance: DEXAMETHASONE
  11. COUMADIN [Concomitant]
     Active Substance: WARFARIN SODIUM
  12. SENOKOT [Concomitant]
     Active Substance: SENNOSIDES

REACTIONS (1)
  - Limb operation [Unknown]
